FAERS Safety Report 15583040 (Version 5)
Quarter: 2019Q1

REPORT INFORMATION
  Report Type: Spontaneous
  Country: US (occurrence: US)
  Receive Date: 20181105
  Receipt Date: 20190204
  Transmission Date: 20190417
  Serious: Yes (Other)
  Sender: FDA-Public Use
  Company Number: US-PFIZER INC-2018447779

PATIENT
  Age: 49 Year
  Sex: Male

DRUGS (1)
  1. EPINEPHRINE/LIDOCAINE HYDROCHLORIDE [Suspect]
     Active Substance: EPINEPHRINE\LIDOCAINE HYDROCHLORIDE
     Indication: HYPOAESTHESIA
     Dosage: 1:100000/2 %
     Dates: start: 20180828, end: 20181017

REACTIONS (5)
  - Product use complaint [None]
  - Vasoconstriction [Unknown]
  - Drug ineffective [Unknown]
  - Inadequate analgesia [None]
  - Skin necrosis [Unknown]

NARRATIVE: CASE EVENT DATE: 20180828
